FAERS Safety Report 4399887-0 (Version None)
Quarter: 2004Q3

REPORT INFORMATION
  Report Type: 
  Country: None (occurrence: None)
  Receive Date: 20040714
  Receipt Date: 20040701
  Transmission Date: 20050211
  Serious: Yes (Death, Hospitalization)
  Sender: FDA-Public Use
  Company Number: EWC021233301

PATIENT
  Age: 78 Year
  Sex: Male
  Weight: 90 kg

DRUGS (6)
  1. ZYPREXA [Suspect]
     Indication: SCHIZOTYPAL PERSONALITY DISORDER
     Dosage: 10 MG DAY
     Dates: start: 20021009, end: 20021029
  2. OMEPRAZOLE [Concomitant]
  3. PROCRIN (LEUPRORELIN ACETATE) [Concomitant]
  4. LEXATIN (BROMAZEPAM) [Concomitant]
  5. ALLOPURINOL [Concomitant]
  6. ISCOVER (CLOPIDOGREL SULFATE) [Concomitant]

REACTIONS (12)
  - ACCIDENTAL OVERDOSE [None]
  - AUTOIMMUNE DISORDER [None]
  - CEREBRAL DISORDER [None]
  - CONDITION AGGRAVATED [None]
  - DRUG INTERACTION [None]
  - EPISTAXIS [None]
  - GASTROINTESTINAL DISORDER [None]
  - GINGIVAL BLEEDING [None]
  - IDIOPATHIC THROMBOCYTOPENIC PURPURA [None]
  - INTENTIONAL OVERDOSE [None]
  - MELAENA [None]
  - RENAL FAILURE [None]
